FAERS Safety Report 6570329-X (Version None)
Quarter: 2010Q1

REPORT INFORMATION
  Report Type: 
  Country: None (occurrence: None)
  Receive Date: 20100204
  Receipt Date: 20100127
  Transmission Date: 20100710
  Serious: Yes (Hospitalization)
  Sender: FDA-Public Use
  Company Number: AT-JNJFOC-20100110401

PATIENT
  Sex: Male
  Weight: 76 kg

DRUGS (7)
  1. DORIBAX [Suspect]
     Indication: ARTHRITIS BACTERIAL
  2. CYKLOKAPRON [Concomitant]
     Route: 048
  3. THYREX [Concomitant]
     Route: 048
  4. ALNA [Concomitant]
     Route: 048
  5. LASIX [Concomitant]
     Route: 048
  6. NOVALGIN [Concomitant]
     Route: 048
  7. ALDACTONE [Concomitant]
     Route: 042

REACTIONS (3)
  - FLUID RETENTION [None]
  - OFF LABEL USE [None]
  - WEIGHT INCREASED [None]
